FAERS Safety Report 9265209 (Version 8)
Quarter: 2016Q1

REPORT INFORMATION
  Report Type: Spontaneous
  Country: US (occurrence: US)
  Receive Date: 20130501
  Receipt Date: 20160318
  Transmission Date: 20160526
  Serious: Yes (Hospitalization)
  Sender: FDA-Public Use
  Company Number: US-009507513-1304USA017121

PATIENT
  Sex: Male
  Weight: 79.37 kg

DRUGS (3)
  1. PROPECIA [Suspect]
     Active Substance: FINASTERIDE
     Dosage: UNK, QD
     Route: 048
     Dates: start: 20121204
  2. PROPECIA [Suspect]
     Active Substance: FINASTERIDE
     Dosage: 1 MG, QAM
     Route: 048
     Dates: start: 20090106, end: 201203
  3. PROPECIA [Suspect]
     Active Substance: FINASTERIDE
     Indication: ALOPECIA
     Dosage: 1 MG, UNK
     Route: 048
     Dates: start: 20070228, end: 200709

REACTIONS (23)
  - Insomnia [Unknown]
  - Constipation [Unknown]
  - Rash [Unknown]
  - Insomnia [Unknown]
  - Fall [Unknown]
  - Headache [Unknown]
  - Headache [Unknown]
  - Anxiety [Unknown]
  - Prostatitis [Unknown]
  - Sexual dysfunction [Not Recovered/Not Resolved]
  - Epididymal cyst [Unknown]
  - Libido decreased [Not Recovered/Not Resolved]
  - Organic erectile dysfunction [Not Recovered/Not Resolved]
  - Lumbar radiculopathy [Unknown]
  - Adverse drug reaction [Unknown]
  - Restless legs syndrome [Unknown]
  - Pruritus [Unknown]
  - Hair transplant [Unknown]
  - Hypertension [Not Recovered/Not Resolved]
  - Nasal congestion [Unknown]
  - Anxiety [Unknown]
  - Polyneuropathy [Unknown]
  - Head injury [Unknown]

NARRATIVE: CASE EVENT DATE: 2007
